FAERS Safety Report 5362515-1 (Version None)
Quarter: 2007Q2

REPORT INFORMATION
  Report Type: 
  Country: None (occurrence: None)
  Receive Date: 20070619
  Receipt Date: 20070605
  Transmission Date: 20071010
  Serious: Yes (Other)
  Sender: FDA-Public Use
  Company Number: US-SHR-US-2007-002864

PATIENT
  Age: 59 Year
  Sex: Female

DRUGS (4)
  1. BETASERON [Suspect]
     Indication: MULTIPLE SCLEROSIS
     Dosage: 8 MIU, EVERY 2D
     Route: 058
     Dates: start: 20050821, end: 20070216
  2. XANAX [Concomitant]
  3. LEXAPRO [Concomitant]
  4. BLOOD PRESSURE MEDICATION [Concomitant]

REACTIONS (6)
  - ANXIETY [None]
  - DELUSIONAL DISORDER, UNSPECIFIED TYPE [None]
  - DEPRESSION [None]
  - HALLUCINATION, AUDITORY [None]
  - PARANOIA [None]
  - WEIGHT DECREASED [None]
